FAERS Safety Report 25363229 (Version 1)
Quarter: 2025Q2

REPORT INFORMATION
  Report Type: Spontaneous
  Country: US (occurrence: None)
  Receive Date: 20250526
  Receipt Date: 20250526
  Transmission Date: 20250716
  Serious: Yes (Disabling)
  Sender: FDA-CTU
  Company Number: None

PATIENT
  Age: 77 Year
  Sex: Male
  Weight: 73.35 kg

DRUGS (15)
  1. CIPROFLOXACIN HYDROCHLORIDE [Suspect]
     Active Substance: CIPROFLOXACIN HYDROCHLORIDE
     Indication: Diverticulitis
     Dosage: FREQUENCY : TWICE A DAY;?
     Route: 048
     Dates: start: 20250328, end: 20250404
  2. ATORVASTATIN [Concomitant]
     Active Substance: ATORVASTATIN
  3. LOSARTAN [Concomitant]
     Active Substance: LOSARTAN
  4. PANTOPRAZOLE [Concomitant]
     Active Substance: PANTOPRAZOLE
  5. FAMOTIDINE [Concomitant]
     Active Substance: FAMOTIDINE
  6. DEVICE [Concomitant]
     Active Substance: DEVICE
  7. hearing aids [Concomitant]
  8. NM-6603 [Concomitant]
     Active Substance: NM-6603
  9. VITAMIN C [Concomitant]
     Active Substance: ASCORBIC ACID
  10. VITAMIN E [Concomitant]
     Active Substance: .ALPHA.-TOCOPHEROL
  11. ASPIRIN [Concomitant]
     Active Substance: ASPIRIN
  12. FURROUS SULFATE [Concomitant]
  13. MitoQ pure [Concomitant]
  14. PROBIOTICS NOS [Concomitant]
     Active Substance: PROBIOTICS NOS
  15. MAGNESIUM [Concomitant]
     Active Substance: MAGNESIUM

REACTIONS (20)
  - General physical health deterioration [None]
  - Muscle tightness [None]
  - Tendon disorder [None]
  - Joint noise [None]
  - Pain in extremity [None]
  - Arthralgia [None]
  - Arthralgia [None]
  - Arthralgia [None]
  - Arthralgia [None]
  - Arthralgia [None]
  - Muscle atrophy [None]
  - Weight decreased [None]
  - Paraesthesia [None]
  - Feeling hot [None]
  - Neuropathy peripheral [None]
  - Anxiety [None]
  - Depression [None]
  - Gait disturbance [None]
  - Muscular weakness [None]
  - Tendon pain [None]

NARRATIVE: CASE EVENT DATE: 20250404
